FAERS Safety Report 4865644-1 (Version None)
Quarter: 2005Q4

REPORT INFORMATION
  Report Type: 
  Country: None (occurrence: None)
  Receive Date: 20051220
  Receipt Date: 20051207
  Transmission Date: 20060501
  Serious: Yes (Hospitalization, Other)
  Sender: FDA-Public Use
  Company Number: 2005165428

PATIENT
  Sex: Female
  Weight: 58.9676 kg

DRUGS (1)
  1. DILANTIN [Suspect]
     Indication: CONVULSION
     Dates: start: 20000901, end: 20050101

REACTIONS (14)
  - ABASIA [None]
  - ANTICONVULSANT DRUG LEVEL INCREASED [None]
  - APHAGIA [None]
  - APHASIA [None]
  - BRAIN NEOPLASM [None]
  - COMA [None]
  - COORDINATION ABNORMAL [None]
  - DEPRESSED LEVEL OF CONSCIOUSNESS [None]
  - DRUG PRESCRIBING ERROR [None]
  - NEOPLASM PROGRESSION [None]
  - NYSTAGMUS [None]
  - OVERDOSE [None]
  - TREMOR [None]
  - UNEVALUABLE EVENT [None]
